FAERS Safety Report 8346649-5 (Version None)
Quarter: 2012Q2

REPORT INFORMATION
  Report Type: 
  Country: None (occurrence: None)
  Receive Date: 20120509
  Receipt Date: 20120426
  Transmission Date: 20120825
  Serious: Yes (Other)
  Sender: FDA-Public Use
  Company Number: US-SANOFI-AVENTIS-2012SA024764

PATIENT
  Age: 88 Year
  Sex: Female
  Weight: 30.45 kg

DRUGS (19)
  1. LANTUS [Suspect]
     Dosage: 10-12 UNITS
     Route: 058
     Dates: start: 20111103, end: 20120402
  2. BENAZEPRIL HYDROCHLORIDE [Concomitant]
  3. CLONIDINE [Concomitant]
  4. CALCIUM/IRON [Concomitant]
  5. SOLOSTAR [Suspect]
     Dates: start: 20111103, end: 20120402
  6. FISH OIL [Concomitant]
  7. STOOL SOFTENER [Concomitant]
  8. LANTUS [Suspect]
     Dosage: 10-12 UNITS
     Route: 058
     Dates: start: 20111103, end: 20120402
  9. OMEPRAZOLE [Concomitant]
  10. LANTUS [Suspect]
     Dosage: 10-12 UNITS
     Route: 058
     Dates: start: 20120402
  11. NOVOLOG [Concomitant]
     Dosage: 3-5 UNITS
  12. VITAMIN D [Concomitant]
  13. SOLOSTAR [Suspect]
     Dates: start: 20111103, end: 20120402
  14. SIMVASTATIN [Concomitant]
  15. ATENOLOL [Concomitant]
  16. ALL OTHER THERAPEUTIC PRODUCTS [Concomitant]
  17. FUROSEMIDE [Concomitant]
  18. MULTI-VITAMINS [Concomitant]
  19. GLUCOSAMINE W/CHONDROITIN [Concomitant]

REACTIONS (2)
  - FEMUR FRACTURE [None]
  - DRUG INEFFECTIVE [None]
